FAERS Safety Report 10236984 (Version 1)
Quarter: 2014Q2

REPORT INFORMATION
  Report Type: Report from Study
  Country: ES (occurrence: ES)
  Receive Date: 20140613
  Receipt Date: 20140613
  Transmission Date: 20141212
  Serious: Yes (Other)
  Sender: FDA-Public Use
  Company Number: ES-MYLANLABS-2014S1013454

PATIENT
  Age: 168 Month
  Sex: Female

DRUGS (2)
  1. ACICLOVIR [Suspect]
     Indication: ENCEPHALITIS
     Route: 042
  2. ACICLOVIR [Suspect]
     Indication: TUBERCULOSIS
     Route: 042

REACTIONS (1)
  - Hepatotoxicity [Unknown]
